FAERS Safety Report 6108678-1 (Version None)
Quarter: 2009Q1

REPORT INFORMATION
  Report Type: 
  Country: None (occurrence: None)
  Receive Date: 20090305
  Receipt Date: 20090220
  Transmission Date: 20090719
  Serious: Yes (Hospitalization)
  Sender: FDA-Public Use
  Company Number: 2009000486

PATIENT
  Age: 61 Year

DRUGS (1)
  1. ERLOTINIB (ERLOTINIB) (TABLET) (ERLOTINIB) [Suspect]
     Indication: NON-SMALL CELL LUNG CANCER
     Dosage: (150 MG), ORAL
     Route: 048
     Dates: start: 20080214

REACTIONS (2)
  - CHEST PAIN [None]
  - PLEURAL EFFUSION [None]
